FAERS Safety Report 10518686 (Version 1)
Quarter: 2014Q4

REPORT INFORMATION
  Report Type: Spontaneous
  Country: US (occurrence: None)
  Receive Date: 20141014
  Receipt Date: 20141014
  Transmission Date: 20150528
  Serious: Yes (Other)
  Sender: FDA-Public Use
  Company Number: None

PATIENT
  Age: 19 Year
  Sex: Male
  Weight: 68.9 kg

DRUGS (23)
  1. FOLIC ACID. [Concomitant]
     Active Substance: FOLIC ACID
  2. PAMELOR [Concomitant]
     Active Substance: NORTRIPTYLINE HYDROCHLORIDE
  3. ZOLOFT [Concomitant]
     Active Substance: SERTRALINE HYDROCHLORIDE
  4. CLARITIN [Concomitant]
     Active Substance: LORATADINE
  5. ZYPREXA [Concomitant]
     Active Substance: OLANZAPINE
  6. PROGRAF [Concomitant]
     Active Substance: TACROLIMUS\TACROLIMUS ANHYDROUS
  7. DILAUDID [Concomitant]
     Active Substance: HYDROMORPHONE HYDROCHLORIDE
  8. ZOFRAN [Concomitant]
     Active Substance: ONDANSETRON HYDROCHLORIDE
  9. BACTRIM DS [Concomitant]
     Active Substance: SULFAMETHOXAZOLE\TRIMETHOPRIM
  10. ACYCLOVIR. [Concomitant]
     Active Substance: ACYCLOVIR
  11. KLONOPIN [Concomitant]
     Active Substance: CLONAZEPAM
  12. FLONASE [Concomitant]
     Active Substance: FLUTICASONE PROPIONATE
  13. VORICONAZOLE. [Concomitant]
     Active Substance: VORICONAZOLE
  14. DIFLUCAN [Concomitant]
     Active Substance: FLUCONAZOLE
  15. SEROQUEL [Concomitant]
     Active Substance: QUETIAPINE FUMARATE
  16. SENOKOT [Concomitant]
     Active Substance: SENNOSIDES
  17. ACTIGALL [Concomitant]
     Active Substance: URSODIOL
  18. MULTIVITAMIN [Concomitant]
     Active Substance: VITAMINS
  19. PROTONIX [Concomitant]
     Active Substance: PANTOPRAZOLE SODIUM
  20. ULTRAM [Concomitant]
     Active Substance: TRAMADOL HYDROCHLORIDE
  21. AZACITIDINE. [Suspect]
     Active Substance: AZACITIDINE
     Indication: ACUTE MYELOID LEUKAEMIA
     Dosage: 70MG DAY 1 TO DAY 5 SUCUTANEOUS
     Route: 058
     Dates: start: 20140922, end: 20140926
  22. VALPROIC ACID. [Suspect]
     Active Substance: VALPROIC ACID
     Indication: ACUTE MYELOID LEUKAEMIA
     Dosage: 70MG DAY 1 TO DAY 5 SUBCUTANEOUS
     Route: 048
     Dates: start: 20140922
  23. COMPAZINE [Concomitant]
     Active Substance: PROCHLORPERAZINE MALEATE

REACTIONS (1)
  - Leukaemia recurrent [None]

NARRATIVE: CASE EVENT DATE: 20141006
